FAERS Safety Report 15448932 (Version 2)
Quarter: 2019Q1

REPORT INFORMATION
  Report Type: Report from Study
  Country: US (occurrence: US)
  Receive Date: 20180930
  Receipt Date: 20190107
  Transmission Date: 20190417
  Serious: No
  Sender: FDA-Public Use
  Company Number: PHEH2018US040812

PATIENT
  Sex: Female

DRUGS (1)
  1. GILENYA [Suspect]
     Active Substance: FINGOLIMOD HYDROCHLORIDE
     Indication: MULTIPLE SCLEROSIS
     Dosage: 0.5 MG, QD
     Route: 048

REACTIONS (8)
  - Gait disturbance [Unknown]
  - Muscular weakness [Unknown]
  - Balance disorder [Unknown]
  - Discomfort [Unknown]
  - Limb discomfort [Unknown]
  - Pain [Unknown]
  - Pain in extremity [Unknown]
  - Muscle spasms [Unknown]
